FAERS Safety Report 4990388-5 (Version None)
Quarter: 2006Q2

REPORT INFORMATION
  Report Type: 
  Country: None (occurrence: None)
  Receive Date: 20060427
  Receipt Date: 20060425
  Transmission Date: 20061013
  Serious: Yes (Hospitalization, Other)
  Sender: FDA-Public Use
  Company Number: HQWYE495923MAR06

PATIENT
  Age: 26 Year
  Sex: Male

DRUGS (1)
  1. ADVIL [Suspect]
     Dosage: 150 TABLETS PER 400 MG (60 G = 750 MG/KG OF BODY WEIGHT), ORAL
     Route: 048

REACTIONS (5)
  - DRUG TOXICITY [None]
  - GASTROINTESTINAL DISORDER [None]
  - GASTROINTESTINAL HAEMORRHAGE [None]
  - INTENTIONAL OVERDOSE [None]
  - SUICIDE ATTEMPT [None]
